FAERS Safety Report 10620008 (Version 1)
Quarter: 2014Q4

REPORT INFORMATION
  Report Type: Spontaneous
  Country: US (occurrence: US)
  Receive Date: 20141202
  Receipt Date: 20141202
  Transmission Date: 20150529
  Serious: No
  Sender: FDA-Public Use
  Company Number: US-B.I. PHARMACEUTICALS,INC./RIDGEFIELD-2014-BI-56646BP

PATIENT
  Sex: Male
  Weight: 94.8 kg

DRUGS (1)
  1. SPIRIVA [Suspect]
     Active Substance: TIOTROPIUM BROMIDE MONOHYDRATE
     Indication: PRODUCT USED FOR UNKNOWN INDICATION
     Route: 055
     Dates: start: 201311

REACTIONS (3)
  - Head injury [Recovered/Resolved]
  - Concussion [Recovered/Resolved with Sequelae]
  - Road traffic accident [Recovered/Resolved]

NARRATIVE: CASE EVENT DATE: 2014
